FAERS Safety Report 5256218-1 (Version None)
Quarter: 2007Q1

REPORT INFORMATION
  Report Type: 
  Country: None (occurrence: None)
  Receive Date: 20070306
  Receipt Date: 20070227
  Transmission Date: 20070707
  Serious: Yes (Hospitalization)
  Sender: FDA-Public Use
  Company Number: US-BAYER-200616835BWH

PATIENT
  Age: 49 Year
  Sex: Male

DRUGS (3)
  1. AVELOX [Suspect]
     Indication: ACUTE SINUSITIS
     Route: 048
  2. AVONEX [Concomitant]
  3. CRESTOR [Concomitant]

REACTIONS (3)
  - HEPATITIS [None]
  - JAUNDICE [None]
  - URTICARIA GENERALISED [None]
